FAERS Safety Report 14358674 (Version 2)
Quarter: 2020Q2

REPORT INFORMATION
  Report Type: Report from Study
  Country: US (occurrence: US)
  Receive Date: 20180105
  Receipt Date: 20200504
  Transmission Date: 20200713
  Serious: No
  Sender: FDA-Public Use
  Company Number: US-SA-2017SA244902

PATIENT
  Age: 36 Year
  Sex: Male

DRUGS (2)
  1. DUPILUMAB [Suspect]
     Active Substance: DUPILUMAB
     Dosage: 300 MG, QOW
     Route: 058
  2. DUPILUMAB [Suspect]
     Active Substance: DUPILUMAB
     Indication: DERMATITIS ATOPIC
     Dosage: 600 MG, 1X
     Route: 058
     Dates: start: 201707, end: 201707

REACTIONS (6)
  - Injection site pain [Recovered/Resolved]
  - Contusion [Unknown]
  - Pruritus [Unknown]
  - Injection site urticaria [Unknown]
  - Skin fissures [Unknown]
  - Injection site mass [Unknown]

NARRATIVE: CASE EVENT DATE: 2017
